FAERS Safety Report 5007754-4 (Version None)
Quarter: 2006Q2

REPORT INFORMATION
  Report Type: 
  Country: None (occurrence: None)
  Receive Date: 20060522
  Receipt Date: 20060517
  Transmission Date: 20061013
  Serious: Yes (Hospitalization)
  Sender: FDA-Public Use
  Company Number: 2006CG00891

PATIENT
  Age: 52 Year
  Sex: Male

DRUGS (8)
  1. TENORMIN [Suspect]
     Indication: ESSENTIAL HYPERTENSION
     Route: 048
  2. NOVORAPID [Interacting]
     Route: 058
  3. NOVORAPID [Interacting]
     Route: 058
  4. LANTUS [Interacting]
     Indication: DIABETES MELLITUS
     Route: 058
  5. GARDENAL [Concomitant]
  6. KEPPRA [Concomitant]
  7. LASILIX [Concomitant]
  8. PERMIXON [Concomitant]

REACTIONS (2)
  - DRUG INTERACTION [None]
  - HYPOGLYCAEMIA [None]
